FAERS Safety Report 23302583 (Version 1)
Quarter: 2023Q4

REPORT INFORMATION
  Report Type: Spontaneous
  Country: IN (occurrence: IN)
  Receive Date: 20231215
  Receipt Date: 20231215
  Transmission Date: 20240109
  Serious: Yes (Death)
  Sender: FDA-Public Use
  Company Number: IN-PFIZER INC-202101353290

PATIENT
  Age: 53 Year
  Sex: Female
  Weight: 59.7 kg

DRUGS (6)
  1. PALBOCICLIB [Suspect]
     Active Substance: PALBOCICLIB
     Dosage: 125 MG, 1X/DAY, FOR 21 CONSECUTIVE DAYS FOLLOWED BY 7 DAYS OFF
     Route: 048
     Dates: start: 20210818
  2. PALBOCICLIB [Suspect]
     Active Substance: PALBOCICLIB
     Dosage: 125MG  21/28 DAYS
  3. FULVESTRANT [Concomitant]
     Active Substance: FULVESTRANT
     Dosage: 500MG 1 MONTH STAT
  4. FULVESTRANT [Concomitant]
     Active Substance: FULVESTRANT
     Dosage: 500 MG, EVERY 28DAYS
     Route: 030
  5. ZOLEDRONIC ACID [Concomitant]
     Active Substance: ZOLEDRONIC ACID
     Dosage: 4MG IN 100ML NS OVER 1/2 MONTH
  6. ZOLEDRONIC ACID [Concomitant]
     Active Substance: ZOLEDRONIC ACID
     Dosage: 4 MG ON 100ML NS OVER 1 HOUR

REACTIONS (11)
  - Death [Fatal]
  - Breast pain [Unknown]
  - Breast swelling [Unknown]
  - Paraesthesia [Unknown]
  - Hypoaesthesia [Unknown]
  - White blood cell count abnormal [Unknown]
  - Weight increased [Unknown]
  - Neutrophil count abnormal [Unknown]
  - Heart rate abnormal [Unknown]
  - Weight decreased [Unknown]
  - Neoplasm progression [Unknown]

NARRATIVE: CASE EVENT DATE: 20231127
